FAERS Safety Report 6201794-5 (Version None)
Quarter: 2009Q2

REPORT INFORMATION
  Report Type: 
  Country: None (occurrence: None)
  Receive Date: 20090520
  Receipt Date: 20090513
  Transmission Date: 20091009
  Serious: Yes (Hospitalization, Other)
  Sender: FDA-Public Use
  Company Number: 2009SP009379

PATIENT
  Age: 55 Year
  Sex: Female
  Weight: 88.1 kg

DRUGS (2)
  1. TEMOZOLOMIDE [Suspect]
     Indication: CENTRAL NERVOUS SYSTEM LYMPHOMA
     Dosage: 200 MG;QD;PO
     Route: 048
     Dates: start: 20090424, end: 20090429
  2. METHOTREXATE [Suspect]
     Indication: CENTRAL NERVOUS SYSTEM LYMPHOMA
     Dosage: 6650 MG; QOW;IV
     Route: 042
     Dates: start: 20090417, end: 20090417

REACTIONS (10)
  - ALANINE AMINOTRANSFERASE INCREASED [None]
  - ASPARTATE AMINOTRANSFERASE INCREASED [None]
  - DIARRHOEA [None]
  - FATIGUE [None]
  - FEBRILE NEUTROPENIA [None]
  - HAEMATURIA [None]
  - PANCYTOPENIA [None]
  - RASH ERYTHEMATOUS [None]
  - RASH GENERALISED [None]
  - STOMATITIS [None]
